FAERS Safety Report 9807513 (Version 1)
Quarter: 2014Q1

REPORT INFORMATION
  Report Type: Spontaneous
  Country: US (occurrence: US)
  Receive Date: 20140110
  Receipt Date: 20140110
  Transmission Date: 20141002
  Serious: No
  Sender: FDA-Public Use
  Company Number: US-SANOFI-AVENTIS-2012SA033569

PATIENT
  Age: 73 Year
  Sex: Male
  Weight: 77.11 kg

DRUGS (10)
  1. PLAVIX [Suspect]
     Indication: CEREBROVASCULAR ACCIDENT
     Route: 048
     Dates: start: 201201
  2. ASPIRIN [Concomitant]
     Indication: CEREBROVASCULAR ACCIDENT
  3. JANUVIA [Concomitant]
     Dosage: FREQUENCY: QAM (EVERY MORNING)
  4. NORVASC [Concomitant]
  5. HYZAAR [Concomitant]
     Dosage: DOSE: 100/12.5 MG
  6. METFORMIN [Concomitant]
  7. GLYBURIDE [Concomitant]
  8. FLOMAX [Concomitant]
  9. FISH OIL [Concomitant]
  10. GABAPENTIN [Concomitant]

REACTIONS (2)
  - Skin discolouration [Not Recovered/Not Resolved]
  - Chromaturia [Unknown]
